FAERS Safety Report 7497034-X (Version None)
Quarter: 2011Q2

REPORT INFORMATION
  Report Type: 
  Country: None (occurrence: None)
  Receive Date: 20110523
  Receipt Date: 20110510
  Transmission Date: 20111010
  Serious: Yes (Other)
  Sender: FDA-Public Use
  Company Number: PHHY2011US24418

PATIENT
  Age: 45 Year
  Sex: Female
  Weight: 73 kg

DRUGS (7)
  1. DEPAKOTE [Concomitant]
     Indication: CONVULSION
     Dosage: 1000 MG, DAILY
     Route: 048
     Dates: start: 20080903, end: 20090511
  2. ACETAMINOPHEN [Concomitant]
     Dosage: 325 MG, PRN
     Dates: start: 20070414, end: 20081231
  3. GILENYA [Suspect]
     Indication: MULTIPLE SCLEROSIS
     Dosage: 1.25 MG, DAILY
     Route: 048
     Dates: start: 20081116, end: 20090818
  4. PROMETHAZINE [Concomitant]
     Indication: MOTION SICKNESS
     Dosage: 25 MG, PRN
     Dates: start: 20070903, end: 20100706
  5. MECLIZINE [Concomitant]
     Indication: VERTIGO
     Dosage: 25 MG, PRN
     Dates: start: 20080721
  6. ESTRADIOL [Concomitant]
     Dosage: 0.074 MG, QW
     Route: 062
     Dates: start: 20081007, end: 20100412
  7. HYOSCYAMINE [Concomitant]
     Indication: IRRITABLE BOWEL SYNDROME
     Dosage: 20.125 MG, PRN
     Dates: start: 20081217, end: 20091109

REACTIONS (4)
  - LUNG NEOPLASM [None]
  - ASTHMA [None]
  - LUNG INFECTION [None]
  - DYSPNOEA [None]
